FAERS Safety Report 10255469 (Version 1)
Quarter: 2014Q2

REPORT INFORMATION
  Report Type: Spontaneous
  Country: US (occurrence: US)
  Receive Date: 20140624
  Receipt Date: 20140624
  Transmission Date: 20141212
  Serious: Yes (Life-Threatening)
  Sender: FDA-Public Use
  Company Number: CHPA2014US008494

PATIENT
  Age: 70 Year
  Sex: Female

DRUGS (1)
  1. EXCEDRIN UNKNOWN [Suspect]
     Dosage: UNK
     Route: 048

REACTIONS (1)
  - Feeling abnormal [Unknown]
